FAERS Safety Report 8131882-8 (Version None)
Quarter: 2012Q1

REPORT INFORMATION
  Report Type: 
  Country: None (occurrence: None)
  Receive Date: 20120213
  Receipt Date: 20120206
  Transmission Date: 20120608
  Serious: Yes (Other)
  Sender: FDA-Public Use
  Company Number: US-SANOFI-AVENTIS-2012SA002882

PATIENT
  Age: 86 Year
  Sex: Female
  Weight: 77 kg

DRUGS (1)
  1. PLAVIX [Suspect]
     Dates: start: 19970101

REACTIONS (7)
  - OCULAR VASCULAR DISORDER [None]
  - NEOPLASM MALIGNANT [None]
  - BLINDNESS [None]
  - EYE HAEMORRHAGE [None]
  - MACULAR DEGENERATION [None]
  - VISUAL IMPAIRMENT [None]
  - DYSPNOEA EXERTIONAL [None]
